FAERS Safety Report 8885250 (Version 2)
Quarter: 2012Q4

REPORT INFORMATION
  Report Type: 
  Country: US (occurrence: US)
  Receive Date: 20121101
  Receipt Date: 20121112
  Transmission Date: 20130627
  Serious: Yes (Other)
  Sender: FDA-Public Use
  Company Number: US-ROCHE-1150898

PATIENT

DRUGS (3)
  1. CAPECITABINE [Suspect]
     Indication: PANCREATIC CARCINOMA METASTATIC
     Route: 048
  2. GEMCITABINE [Suspect]
     Indication: PANCREATIC CARCINOMA METASTATIC
     Route: 042
  3. PACLITAXEL [Suspect]
     Indication: PANCREATIC CARCINOMA METASTATIC
     Route: 042

REACTIONS (10)
  - Anaemia [Unknown]
  - Neutropenia [Unknown]
  - Liver function test abnormal [Unknown]
  - Fatigue [Unknown]
  - Hyperglycaemia [Unknown]
  - Rash maculo-papular [Unknown]
  - Nausea [Unknown]
  - Vomiting [Unknown]
  - Pruritus [Unknown]
  - Alanine aminotransferase increased [Unknown]
